FAERS Safety Report 5261386-1 (Version None)
Quarter: 2007Q1

REPORT INFORMATION
  Report Type: 
  Country: None (occurrence: None)
  Receive Date: 20070307
  Receipt Date: 20070301
  Transmission Date: 20070707
  Serious: Yes (Other)
  Sender: FDA-Public Use
  Company Number: 163-20785-07011341

PATIENT
  Age: 75 Year
  Sex: Male

DRUGS (1)
  1. THALOMID [Suspect]
     Indication: MYELODYSPLASTIC SYNDROME
     Dosage: 200 MG, QD, ORAL
     Route: 048
     Dates: start: 20060201, end: 20060801

REACTIONS (5)
  - DIARRHOEA [None]
  - HEADACHE [None]
  - MONOPLEGIA [None]
  - MYALGIA [None]
  - NEUROPATHY [None]
